FAERS Safety Report 12582632 (Version 1)
Quarter: 2016Q3

REPORT INFORMATION
  Report Type: Spontaneous
  Country: US (occurrence: None)
  Receive Date: 20160721
  Receipt Date: 20160721
  Transmission Date: 20161109
  Serious: Yes (Death)
  Sender: FDA-Public Use
  Company Number: None

PATIENT
  Age: 70 Year
  Sex: Female

DRUGS (19)
  1. IBRANCE [Suspect]
     Active Substance: PALBOCICLIB
     Indication: BREAST CANCER
     Dosage: 1 CAP DAILY X 21  PO
     Route: 048
     Dates: start: 201604, end: 20160614
  2. METOPROLOL. [Concomitant]
     Active Substance: METOPROLOL
  3. LETROZOLE. [Concomitant]
     Active Substance: LETROZOLE
  4. LACTULOS [Concomitant]
     Active Substance: LACTULOSE
  5. OXYCODONE [Concomitant]
     Active Substance: OXYCODONE
  6. SOD CLOR [Concomitant]
  7. ALBUTEROL. [Concomitant]
     Active Substance: ALBUTEROL
  8. MILK OF MAGNES [Concomitant]
  9. ZANTAC [Concomitant]
     Active Substance: RANITIDINE HYDROCHLORIDE
  10. MELATONIN [Concomitant]
     Active Substance: MELATONIN
  11. TUMS [Concomitant]
     Active Substance: CALCIUM CARBONATE
  12. CULCOLAX [Concomitant]
  13. AMIODARONE [Concomitant]
     Active Substance: AMIODARONE
  14. POTASSIUM [Concomitant]
     Active Substance: POTASSIUM
  15. OMEPRAZOLE. [Concomitant]
     Active Substance: OMEPRAZOLE
  16. ATIVAN [Concomitant]
     Active Substance: LORAZEPAM
  17. XARELTO [Concomitant]
     Active Substance: RIVAROXABAN
  18. TYLENOL [Concomitant]
     Active Substance: ACETAMINOPHEN
  19. LISINOPRIL. [Concomitant]
     Active Substance: LISINOPRIL

REACTIONS (2)
  - Disease complication [None]
  - Neoplasm malignant [None]

NARRATIVE: CASE EVENT DATE: 20160614
